FAERS Safety Report 19354475 (Version 2)
Quarter: 2021Q2

REPORT INFORMATION
  Report Type: Spontaneous
  Country: IT (occurrence: IT)
  Receive Date: 20210602
  Receipt Date: 20210617
  Transmission Date: 20210717
  Serious: Yes (Death, Other)
  Sender: FDA-Public Use
  Company Number: IT-AMGEN-ITASP2021081212

PATIENT

DRUGS (1)
  1. CARFILZOMIB [Suspect]
     Active Substance: CARFILZOMIB
     Indication: PLASMA CELL MYELOMA
     Dosage: UNK
     Route: 065

REACTIONS (6)
  - Unevaluable event [Unknown]
  - Death [Fatal]
  - Graft versus host disease [Fatal]
  - Therapeutic product effect incomplete [Unknown]
  - Plasma cell myeloma [Unknown]
  - Drug ineffective [Unknown]
